FAERS Safety Report 4484532-6 (Version None)
Quarter: 2004Q3

REPORT INFORMATION
  Report Type: 
  Country: None (occurrence: None)
  Receive Date: 20040921
  Receipt Date: 20031229
  Transmission Date: 20050211
  Serious: Yes (Death)
  Sender: FDA-Public Use
  Company Number: 163-20785-03120593(0)

PATIENT
  Age: 67 Year
  Sex: Male

DRUGS (1)
  1. THALOMID [Suspect]
     Indication: MALIGNANT MELANOMA
     Dosage: 150 MG, DAILY, ORAL
     Route: 048
     Dates: start: 20020827, end: 20031021

REACTIONS (6)
  - ABDOMINAL PAIN UPPER [None]
  - DEATH [None]
  - DISEASE PROGRESSION [None]
  - DYSPEPSIA [None]
  - GASTRITIS [None]
  - ULCER [None]
